FAERS Safety Report 22628073 (Version 1)
Quarter: 2023Q2

REPORT INFORMATION
  Report Type: Spontaneous
  Country: NL (occurrence: NL)
  Receive Date: 20230622
  Receipt Date: 20230622
  Transmission Date: 20230722
  Serious: Yes (Life-Threatening, Hospitalization)
  Sender: FDA-Public Use
  Company Number: None

PATIENT
  Sex: Male
  Weight: 88 kg

DRUGS (6)
  1. FLUOROURACIL [Suspect]
     Active Substance: FLUOROURACIL
     Indication: Colon cancer metastatic
     Dosage: 600 MG/M2?(TOTAAL DAG 1 EN 2, 1200 MG/M2)
     Dates: start: 20230508, end: 20230509
  2. FOLIC ACID [Concomitant]
     Active Substance: FOLIC ACID
     Dosage: INJECTIEVLOEISTOF, 10 MG/ML (MILLIGRAM PER MILLILITER)
  3. OXALIPLATIN [Concomitant]
     Active Substance: OXALIPLATIN
     Dosage: OPLOSSING VOOR INFUUS, 5 MG/ML (MILLIGRAM PER MILLILITER)
  4. DEXAMETHASONE [Concomitant]
     Active Substance: DEXAMETHASONE
     Dosage: TABLET, 4 MG (MILLIGRAM)
  5. ONDANSETRON [Concomitant]
     Active Substance: ONDANSETRON
     Dosage: TABLET, 8 MG (MILLIGRAM)
  6. BEVACIZUMAB [Concomitant]
     Active Substance: BEVACIZUMAB
     Dosage: OPLOSSING VOOR INFUUS, 25 MG/ML (MILLIGRAM PER MILLILITER)

REACTIONS (2)
  - Chest pain [Recovered/Resolved]
  - Electrocardiogram abnormal [Recovered/Resolved]
